FAERS Safety Report 4782317-4 (Version None)
Quarter: 2005Q3

REPORT INFORMATION
  Report Type: 
  Country: None (occurrence: None)
  Receive Date: 20050929
  Receipt Date: 20050921
  Transmission Date: 20060218
  Serious: Yes (Other)
  Sender: FDA-Public Use
  Company Number: PHBS2005CL13936

PATIENT
  Sex: Male

DRUGS (1)
  1. DESFERAL [Suspect]

REACTIONS (1)
  - PULMONARY HYPERTENSION [None]
